FAERS Safety Report 24456359 (Version 2)
Quarter: 2024Q4

REPORT INFORMATION
  Report Type: Report from Study
  Country: US (occurrence: US)
  Receive Date: 20241017
  Receipt Date: 20241018
  Transmission Date: 20250115
  Serious: No
  Sender: ROCHE
  Company Number: US-ROCHE-3504058

PATIENT
  Age: 38 Year
  Sex: Male

DRUGS (2)
  1. RITUXAN [Suspect]
     Active Substance: RITUXIMAB
     Indication: Autoimmune haemolytic anaemia
     Dosage: WEEKLY X EVERY 4 WEEKS, QUANTITY: 700MG VIAL, RECEIVED ON 19/JAN/2024? FREQUENCY TEXT:WEEKLY X EVERY
     Route: 041
     Dates: start: 20240119
  2. RITUXAN [Suspect]
     Active Substance: RITUXIMAB
     Indication: Cold type haemolytic anaemia

REACTIONS (2)
  - Off label use [Unknown]
  - No adverse event [Unknown]
